FAERS Safety Report 9726623 (Version 2)
Quarter: 2013Q4

REPORT INFORMATION
  Report Type: Spontaneous
  Country: DE (occurrence: DE)
  Receive Date: 20131203
  Receipt Date: 20131212
  Transmission Date: 20140711
  Serious: Yes (Life-Threatening)
  Sender: FDA-Public Use
  Company Number: DE-GLAXOSMITHKLINE-D0080862A

PATIENT
  Sex: Male
  Weight: 65 kg

DRUGS (3)
  1. REVOLADE [Suspect]
     Indication: IMMUNE THROMBOCYTOPENIC PURPURA
     Dosage: 75MG PER DAY
     Route: 048
     Dates: start: 20130429, end: 20131025
  2. PREDNISOLON [Concomitant]
     Indication: IMMUNE THROMBOCYTOPENIC PURPURA
     Dosage: 7.5MG PER DAY
     Route: 065
     Dates: start: 20130514, end: 20131025
  3. PLATELET CONCENTRATE [Concomitant]
     Route: 042
     Dates: start: 20130513

REACTIONS (3)
  - Platelet count decreased [Recovered/Resolved]
  - Petechiae [Recovered/Resolved]
  - Gingival bleeding [Recovered/Resolved]
